FAERS Safety Report 9580890 (Version 2)
Quarter: 2013Q4

REPORT INFORMATION
  Report Type: Spontaneous
  Country: CA (occurrence: CA)
  Receive Date: 20131002
  Receipt Date: 20131007
  Transmission Date: 20140711
  Serious: Yes (Other)
  Sender: FDA-Public Use
  Company Number: CA-TEVA-435148USA

PATIENT
  Age: 50 Year
  Sex: Male

DRUGS (2)
  1. PROPRANOLOL [Suspect]
     Indication: HYPERTHYROIDISM
     Dosage: 60 MILLIGRAM DAILY;
     Route: 048
     Dates: start: 20130904
  2. SIMVASTATIN [Concomitant]

REACTIONS (4)
  - Hyperthyroidism [Unknown]
  - Feeling jittery [Unknown]
  - Sensory disturbance [Unknown]
  - Off label use [Unknown]
